FAERS Safety Report 9136293 (Version 1)
Quarter: 2013Q1

REPORT INFORMATION
  Report Type: Report from Study
  Country: US (occurrence: US)
  Receive Date: 20130304
  Receipt Date: 20130304
  Transmission Date: 20140127
  Serious: No
  Sender: FDA-Public Use
  Company Number: US-ABBOTT-12P-163-0927946-00

PATIENT
  Sex: Male
  Weight: 93.52 kg

DRUGS (3)
  1. ANDROGEL 1% [Suspect]
     Indication: BLOOD TESTOSTERONE DECREASED
     Dosage: 1 IN 1 DAY, PACKETS
     Dates: start: 2008
  2. ANDROGEL 1% [Suspect]
     Dosage: 1 IN 1 DAY, PACKETS
  3. IRON [Concomitant]
     Indication: ANAEMIA

REACTIONS (2)
  - Blood testosterone increased [Unknown]
  - Asthenia [Unknown]
